FAERS Safety Report 5426952-9 (Version None)
Quarter: 2007Q3

REPORT INFORMATION
  Report Type: 
  Country: None (occurrence: None)
  Receive Date: 20070827
  Receipt Date: 20070821
  Transmission Date: 20080115
  Serious: Yes (Other)
  Sender: FDA-Public Use
  Company Number: US-ABBOTT-07P-163-0378738-00

PATIENT
  Age: 46 Year
  Sex: Male
  Weight: 134.5 kg

DRUGS (2)
  1. HUMIRA [Suspect]
     Indication: PSORIATIC ARTHROPATHY
     Route: 058
     Dates: start: 20060101, end: 20070101
  2. HUMIRA [Suspect]
     Route: 058
     Dates: start: 20070301

REACTIONS (5)
  - BACK PAIN [None]
  - GROIN PAIN [None]
  - HEADACHE [None]
  - SINUS OPERATION [None]
  - STOMACH DISCOMFORT [None]
